FAERS Safety Report 6736249-2 (Version None)
Quarter: 2010Q2

REPORT INFORMATION
  Report Type: 
  Country: None (occurrence: None)
  Receive Date: 20100521
  Receipt Date: 20100510
  Transmission Date: 20101027
  Serious: Yes (Hospitalization)
  Sender: FDA-Public Use
  Company Number: US-JNJFOC-20100506613

PATIENT
  Sex: Male
  Weight: 36.3 kg

DRUGS (6)
  1. INFLIXIMAB [Suspect]
     Indication: INFLAMMATORY BOWEL DISEASE
     Route: 042
     Dates: start: 20060907
  2. INFLIXIMAB [Suspect]
     Route: 042
     Dates: start: 20060907
  3. HUMIRA [Concomitant]
     Indication: INFLAMMATORY BOWEL DISEASE
  4. ENTOCORT EC [Concomitant]
     Indication: INFLAMMATORY BOWEL DISEASE
  5. UNSPECIFIED ANTIBOTIC [Concomitant]
     Indication: INFLAMMATORY BOWEL DISEASE
  6. INTRAVENOUS HYPERALIMENTATION [Concomitant]
     Indication: INFLAMMATORY BOWEL DISEASE

REACTIONS (1)
  - CROHN'S DISEASE [None]
